FAERS Safety Report 19687889 (Version 3)
Quarter: 2022Q2

REPORT INFORMATION
  Report Type: Spontaneous
  Country: US (occurrence: US)
  Receive Date: 20210811
  Receipt Date: 20220505
  Transmission Date: 20220721
  Serious: No
  Sender: FDA-Public Use
  Company Number: US-PFIZER INC-2020118343

PATIENT
  Age: 66 Year
  Sex: Female
  Weight: 107.05 kg

DRUGS (1)
  1. XELJANZ XR [Suspect]
     Active Substance: TOFACITINIB CITRATE
     Indication: Rheumatoid arthritis
     Dosage: 11 MG, 1X/DAY
     Route: 048

REACTIONS (5)
  - Intentional product misuse [Unknown]
  - Loss of personal independence in daily activities [Recovered/Resolved]
  - Condition aggravated [Recovered/Resolved]
  - Adjustment disorder [Recovered/Resolved]
  - Feeling cold [Recovered/Resolved]
